FAERS Safety Report 15332727 (Version 1)
Quarter: 2018Q3

REPORT INFORMATION
  Report Type: Spontaneous
  Country: US (occurrence: US)
  Receive Date: 20180830
  Receipt Date: 20180830
  Transmission Date: 20181010
  Serious: No
  Sender: FDA-Public Use
  Company Number: US-JNJFOC-20180809854

PATIENT
  Sex: Male
  Weight: 90.72 kg

DRUGS (3)
  1. TYLENOL [Suspect]
     Active Substance: ACETAMINOPHEN
     Route: 048
  2. TYLENOL [Suspect]
     Active Substance: ACETAMINOPHEN
     Indication: SCIATICA
     Route: 048
  3. XARELTO [Concomitant]
     Active Substance: RIVAROXABAN
     Indication: PULMONARY EMBOLISM
     Route: 065

REACTIONS (1)
  - Product use in unapproved indication [Unknown]
